FAERS Safety Report 13537916 (Version 1)
Quarter: 2017Q2

REPORT INFORMATION
  Report Type: Report from Study
  Country: CA (occurrence: CA)
  Receive Date: 20170511
  Receipt Date: 20170511
  Transmission Date: 20170830
  Serious: Yes (Death)
  Sender: FDA-Public Use
  Company Number: CA-BAXTER-2017BAX020525

PATIENT

DRUGS (4)
  1. PROCYTOX (CYCLOPHOSPHAMIDE) 2000MG/VIAL [Suspect]
     Active Substance: CYCLOPHOSPHAMIDE
     Indication: REFRACTORY CANCER
  2. ETOPOSIDE. [Suspect]
     Active Substance: ETOPOSIDE
     Indication: ACUTE MYELOID LEUKAEMIA RECURRENT
     Dosage: 2.4 GRAM/M2( HIGH DOSE) OVER 34 HOURS ON DAYS 1-2
     Route: 041
  3. ETOPOSIDE. [Suspect]
     Active Substance: ETOPOSIDE
     Indication: REFRACTORY CANCER
  4. PROCYTOX (CYCLOPHOSPHAMIDE) 2000MG/VIAL [Suspect]
     Active Substance: CYCLOPHOSPHAMIDE
     Indication: ACUTE MYELOID LEUKAEMIA RECURRENT
     Dosage: 2 GRAM/M2 (HIGH DOSE) ON DAYS 3-5
     Route: 065

REACTIONS (1)
  - Haemorrhage intracranial [Fatal]
